FAERS Safety Report 6554404-1 (Version None)
Quarter: 2010Q1

REPORT INFORMATION
  Report Type: 
  Country: None (occurrence: None)
  Receive Date: 20100127
  Receipt Date: 20091223
  Transmission Date: 20100710
  Serious: Yes (Other)
  Sender: FDA-Public Use
  Company Number: CHPA2009US24243

PATIENT
  Age: 75 Year
  Sex: Female
  Weight: 58.957 kg

DRUGS (1)
  1. PREVACID 24 HR [Suspect]
     Indication: GASTROOESOPHAGEAL REFLUX DISEASE
     Dosage: 15 MG, QD
     Route: 048
     Dates: start: 20091222, end: 20091222

REACTIONS (5)
  - ABDOMINAL PAIN UPPER [None]
  - BLOOD PRESSURE INCREASED [None]
  - INCORRECT DRUG ADMINISTRATION DURATION [None]
  - NERVOUSNESS [None]
  - OFF LABEL USE [None]
